FAERS Safety Report 5907892-5 (Version None)
Quarter: 2008Q4

REPORT INFORMATION
  Report Type: 
  Country: None (occurrence: None)
  Receive Date: 20081003
  Receipt Date: 20080923
  Transmission Date: 20090506
  Serious: Yes (Other)
  Sender: FDA-Public Use
  Company Number: US-PFIZER INC-2008064478

PATIENT
  Sex: Female
  Weight: 61 kg

DRUGS (7)
  1. LYRICA [Suspect]
     Indication: PAIN
  2. ARMOUR THYROID [Concomitant]
  3. LASIX [Concomitant]
  4. POTASSIUM CHLORIDE [Concomitant]
  5. PREVACID [Concomitant]
  6. TOPROL-XL [Concomitant]
  7. CLARITIN [Concomitant]

REACTIONS (2)
  - ASPARTATE AMINOTRANSFERASE INCREASED [None]
  - ENCEPHALOPATHY [None]
